FAERS Safety Report 8086590 (Version 8)
Quarter: 2013Q4

REPORT INFORMATION
  Report Type: Spontaneous
  Country: US (occurrence: US)
  Receive Date: 20110811
  Receipt Date: 20131220
  Transmission Date: 20140711
  Serious: Yes (Hospitalization, Disabling, Other)
  Sender: FDA-Public Use
  Company Number: US-009507513-1108USA01227

PATIENT
  Sex: Female
  Weight: 55.34 kg

DRUGS (6)
  1. FOSAMAX [Suspect]
     Indication: OSTEOPOROSIS
     Dosage: 10 MG, QD
     Route: 048
     Dates: start: 19980518
  2. FOSAMAX [Suspect]
     Dosage: 70  MG, QD
     Route: 048
     Dates: start: 20060118
  3. FOSAMAX [Suspect]
     Dosage: 70 MG, QW
     Route: 048
     Dates: start: 2008, end: 200906
  4. HORMONES (UNSPECIFIED) [Concomitant]
     Dates: start: 1997
  5. FOSAMAX [Suspect]
     Indication: OSTEOPOROSIS
     Dosage: 70 MG, QW
     Route: 048
     Dates: start: 20081229, end: 200908
  6. CALCIUM (UNSPECIFIED) [Concomitant]
     Indication: OSTEOPOROSIS

REACTIONS (50)
  - Femur fracture [Unknown]
  - Femur fracture [Unknown]
  - Hyponatraemia [Unknown]
  - Fall [Unknown]
  - Spinal disorder [Unknown]
  - Arthropathy [Unknown]
  - Anaemia [Unknown]
  - Adenoidal disorder [Unknown]
  - Adverse drug reaction [Unknown]
  - Gastrointestinal disorder [Unknown]
  - Fall [Not Recovered/Not Resolved]
  - Device malfunction [Unknown]
  - Pubis fracture [Not Recovered/Not Resolved]
  - Pain in extremity [Unknown]
  - Oedema peripheral [Unknown]
  - Irritable bowel syndrome [Unknown]
  - Hypertension [Not Recovered/Not Resolved]
  - Venous insufficiency [Unknown]
  - Intervertebral disc degeneration [Not Recovered/Not Resolved]
  - Spondylolisthesis [Not Recovered/Not Resolved]
  - Pain [Unknown]
  - Lumbar radiculopathy [Unknown]
  - Hyperlipidaemia [Unknown]
  - Arthritis [Unknown]
  - Fibrocystic breast disease [Unknown]
  - Chest X-ray abnormal [Unknown]
  - Pneumonia [Unknown]
  - Seasonal allergy [Unknown]
  - Hypercholesterolaemia [Unknown]
  - Haematuria [Unknown]
  - Neck mass [Unknown]
  - Fracture delayed union [Unknown]
  - Fracture nonunion [Unknown]
  - Temporomandibular joint syndrome [Unknown]
  - Tooth deposit [Unknown]
  - Bone loss [Unknown]
  - Tooth fracture [Unknown]
  - Tooth fracture [Unknown]
  - Tongue disorder [Recovered/Resolved]
  - Sinus disorder [Unknown]
  - Dental caries [Unknown]
  - Intervertebral disc protrusion [Unknown]
  - Muscle rupture [Unknown]
  - Contusion [Unknown]
  - Post laminectomy syndrome [Unknown]
  - Oesophageal stenosis [Unknown]
  - Hypersensitivity [Unknown]
  - Gastrooesophageal reflux disease [Unknown]
  - Arthralgia [Unknown]
  - Dizziness [Unknown]
